FAERS Safety Report 7197765-5 (Version None)
Quarter: 2010Q4

REPORT INFORMATION
  Report Type: 
  Country: None (occurrence: None)
  Receive Date: 20101208
  Receipt Date: 20101203
  Transmission Date: 20110411
  Serious: Yes (Life-Threatening, Hospitalization)
  Sender: FDA-Public Use
  Company Number: 2010SP063197

PATIENT
  Age: 32 Year
  Sex: Female
  Weight: 150 kg

DRUGS (1)
  1. NUVARING [Suspect]
     Indication: PRODUCT USED FOR UNKNOWN INDICATION
     Dosage: ;VAG
     Route: 067

REACTIONS (1)
  - CERVIX CARCINOMA STAGE I [None]
